FAERS Safety Report 5897639-3 (Version None)
Quarter: 2008Q3

REPORT INFORMATION
  Report Type: 
  Country: None (occurrence: None)
  Receive Date: 20080925
  Receipt Date: 20080915
  Transmission Date: 20090109
  Serious: Yes (Death, Other)
  Sender: FDA-Public Use
  Company Number: AT-ROCHE-587088

PATIENT
  Age: 7 Year
  Sex: Female

DRUGS (9)
  1. MYCOPHENOLATE MOFETIL [Suspect]
     Route: 048
  2. ETOPOSIDE [Suspect]
     Route: 065
  3. CYCLOSPORINE [Concomitant]
     Indication: PROPHYLAXIS
     Route: 065
  4. CASPOFUNGIN [Concomitant]
     Route: 042
  5. NEUPOGEN [Concomitant]
     Route: 058
  6. NEUPOGEN [Concomitant]
     Route: 058
  7. GRANULOCYTE TRANSFUSION [Concomitant]
  8. DEXAMETHASONE [Concomitant]
  9. VORICONAZOLE [Concomitant]

REACTIONS (5)
  - FUNGUS SEROLOGY TEST POSITIVE [None]
  - HISTIOCYTOSIS HAEMATOPHAGIC [None]
  - HYPOTENSION [None]
  - MULTI-ORGAN FAILURE [None]
  - NEUTROPENIA [None]
